FAERS Safety Report 9219266 (Version 1)
Quarter: 2013Q2

REPORT INFORMATION
  Report Type: Spontaneous
  Country: US (occurrence: None)
  Receive Date: 20130408
  Receipt Date: 20130408
  Transmission Date: 20140414
  Serious: Yes (Death)
  Sender: FDA-Public Use
  Company Number: None

PATIENT
  Age: 18 Year
  Sex: Male
  Weight: 45.36 kg

DRUGS (2)
  1. XOLAIR [Suspect]
     Indication: MULTIPLE ALLERGIES
     Dosage: 3 INJECTIONS, BI-WEEKLY, SQ
     Route: 058
  2. XOLAIR [Suspect]
     Indication: ASTHMA
     Dosage: 3 INJECTIONS, BI-WEEKLY, SQ
     Route: 058

REACTIONS (2)
  - Drug dose omission [None]
  - Hypersensitivity [None]
